FAERS Safety Report 10155373 (Version 1)
Quarter: 2014Q2

REPORT INFORMATION
  Report Type: Spontaneous
  Country: US (occurrence: US)
  Receive Date: 20140506
  Receipt Date: 20140506
  Transmission Date: 20141212
  Serious: No
  Sender: FDA-Public Use
  Company Number: US-009507513-2012SP004282

PATIENT
  Age: 37 Year
  Sex: Female

DRUGS (3)
  1. CLARITIN LIQUIGELS [Suspect]
     Indication: HYPERSENSITIVITY
     Dosage: 20 MG, QPM
     Route: 048
     Dates: start: 20120112
  2. CLARITIN LIQUIGELS [Suspect]
     Indication: MEDICAL OBSERVATION
  3. SUDAFED [Concomitant]
     Indication: NASOPHARYNGITIS
     Dosage: UNK UNK, UNKNOWN

REACTIONS (1)
  - Overdose [Not Recovered/Not Resolved]
